FAERS Safety Report 15588863 (Version 3)
Quarter: 2018Q4

REPORT INFORMATION
  Report Type: Spontaneous
  Country: US (occurrence: US)
  Receive Date: 20181106
  Receipt Date: 20181214
  Transmission Date: 20190205
  Serious: No
  Sender: FDA-Public Use
  Company Number: US-AMGEN-USASP2018153741

PATIENT
  Age: 80 Year
  Sex: Female
  Weight: 69.84 kg

DRUGS (1)
  1. PROLIA [Suspect]
     Active Substance: DENOSUMAB
     Indication: OSTEOPOROSIS
     Dosage: 60 MG/ML, Q6MO
     Route: 065
     Dates: start: 20180427

REACTIONS (2)
  - Accidental exposure to product [Unknown]
  - Product dose omission [Unknown]

NARRATIVE: CASE EVENT DATE: 20181023
